FAERS Safety Report 19766283 (Version 5)
Quarter: 2021Q4

REPORT INFORMATION
  Report Type: Spontaneous
  Country: IT (occurrence: IT)
  Receive Date: 20210831
  Receipt Date: 20211116
  Transmission Date: 20220303
  Serious: Yes (Hospitalization)
  Sender: FDA-Public Use
  Company Number: IT-MINISAL02-772381

PATIENT
  Age: 59 Year
  Sex: Female

DRUGS (7)
  1. AMLODIPINE [Suspect]
     Active Substance: AMLODIPINE BESYLATE
     Indication: Hypertension
     Dosage: 5 MILLIGRAM, ONCE A DAY (5 MG,QD)
     Route: 048
  2. RAMIPRIL [Interacting]
     Active Substance: RAMIPRIL
     Indication: Hypertension
     Dosage: 5 MILLIGRAM, ONCE A DAY
     Route: 048
  3. SOTALOL [Interacting]
     Active Substance: SOTALOL
     Indication: Cardiac valve disease
     Dosage: 80 MILLIGRAM, ONCE A DAY (80 MG,QD)
     Route: 048
  4. WARFARIN SODIUM [Interacting]
     Active Substance: WARFARIN SODIUM
     Indication: Atrial fibrillation
     Dosage: 1 DOSAGE FORM AS NECESSARY (1 DF, PRN)
     Route: 048
  5. METFORMIN [Interacting]
     Active Substance: METFORMIN HYDROCHLORIDE
     Indication: Type 2 diabetes mellitus
     Dosage: 1700 MILLIGRAM, UNK
     Route: 048
  6. SIMVASTATIN [Interacting]
     Active Substance: SIMVASTATIN
     Indication: Product used for unknown indication
     Dosage: 20 MILLIGRAM, UNK
     Route: 048
  7. FERROUS SULFATE [Interacting]
     Active Substance: FERROUS SULFATE
     Indication: Anaemia
     Dosage: 1 DOSAGE FORM, UNK
     Route: 048

REACTIONS (4)
  - Tachycardia [Recovering/Resolving]
  - Anaemia [Recovering/Resolving]
  - Drug interaction [Recovering/Resolving]
  - Drug ineffective [Recovering/Resolving]

NARRATIVE: CASE EVENT DATE: 20210716
